FAERS Safety Report 25020079 (Version 1)
Quarter: 2025Q1

REPORT INFORMATION
  Report Type: Spontaneous
  Country: US (occurrence: US)
  Receive Date: 20250227
  Receipt Date: 20250227
  Transmission Date: 20250409
  Serious: Yes (Life-Threatening, Hospitalization, Disabling, Other)
  Sender: BOEHRINGER INGELHEIM
  Company Number: US-Komodo Health-a23aa0000061MvtAAE

PATIENT
  Sex: Male

DRUGS (1)
  1. JARDIANCE [Suspect]
     Active Substance: EMPAGLIFLOZIN
     Indication: Product used for unknown indication

REACTIONS (11)
  - Multiple organ dysfunction syndrome [Unknown]
  - Myelosuppression [Not Recovered/Not Resolved]
  - Hepatic failure [Unknown]
  - Bacterial sepsis [Not Recovered/Not Resolved]
  - Anaemia [Not Recovered/Not Resolved]
  - Gait disturbance [Not Recovered/Not Resolved]
  - Muscle atrophy [Not Recovered/Not Resolved]
  - Loss of consciousness [Recovered/Resolved]
  - Yellow skin [Not Recovered/Not Resolved]
  - Erythema [Not Recovered/Not Resolved]
  - Fungal infection [Unknown]

NARRATIVE: CASE EVENT DATE: 20250201
